FAERS Safety Report 11603342 (Version 1)
Quarter: 2015Q4

REPORT INFORMATION
  Report Type: Report from Study
  Country: JP (occurrence: JP)
  Receive Date: 20151007
  Receipt Date: 20151007
  Transmission Date: 20160304
  Serious: Yes (Death)
  Sender: FDA-Public Use
  Company Number: JP-ROCHE-1631953

PATIENT
  Age: 83 Year
  Sex: Female

DRUGS (14)
  1. SENNARIDE [Concomitant]
     Active Substance: SENNOSIDES A AND B
     Route: 048
     Dates: start: 20131203, end: 20141203
  2. BROTIZOLAM [Concomitant]
     Active Substance: BROTIZOLAM
     Route: 048
     Dates: start: 20131212, end: 20140327
  3. OLMETEC [Concomitant]
     Active Substance: OLMESARTAN MEDOXOMIL
     Route: 048
     Dates: start: 20130926, end: 20131127
  4. FEBURIC [Concomitant]
     Active Substance: FEBUXOSTAT
     Route: 048
     Dates: start: 20131128, end: 20131212
  5. METHOXY POLYETHYLENE GLYCOL-EPOETIN BETA [Suspect]
     Active Substance: METHOXY POLYETHYLENE GLYCOL-EPOETIN BETA
     Indication: NEPHROGENIC ANAEMIA
     Route: 058
     Dates: start: 20130829, end: 20140314
  6. OLMETEC [Concomitant]
     Active Substance: OLMESARTAN MEDOXOMIL
     Route: 048
     Dates: end: 20130925
  7. THYRADIN-S [Concomitant]
     Active Substance: LEVOTHYROXINE
     Route: 048
     Dates: start: 20131024, end: 20140127
  8. D-ALFA [Concomitant]
     Route: 048
     Dates: start: 20131203, end: 20141203
  9. RIBALL [Concomitant]
     Active Substance: ALLOPURINOL
     Route: 048
     Dates: start: 20131206, end: 20140320
  10. FUROSEMIDE. [Concomitant]
     Active Substance: FUROSEMIDE
     Route: 048
     Dates: start: 20131128, end: 20140327
  11. DIMETICONE [Concomitant]
     Active Substance: DIMETHICONE
     Route: 048
     Dates: start: 20131219, end: 20140327
  12. FLUNITRAZEPAM [Concomitant]
     Active Substance: FLUNITRAZEPAM
     Route: 048
     Dates: start: 20131212, end: 20140327
  13. URSO [Concomitant]
     Active Substance: URSODIOL
     Route: 048
     Dates: start: 20131212, end: 20140417
  14. NEXIUM [Concomitant]
     Active Substance: ESOMEPRAZOLE MAGNESIUM
     Route: 048
     Dates: start: 20140306, end: 20141203

REACTIONS (2)
  - Lower gastrointestinal haemorrhage [Fatal]
  - Hypertension [Unknown]

NARRATIVE: CASE EVENT DATE: 20141201
